FAERS Safety Report 7405493-3 (Version None)
Quarter: 2011Q2

REPORT INFORMATION
  Report Type: 
  Country: None (occurrence: None)
  Receive Date: 20110411
  Receipt Date: 20110325
  Transmission Date: 20111010
  Serious: Yes (Hospitalization)
  Sender: FDA-Public Use
  Company Number: US-BAXTER-2011BH008629

PATIENT
  Sex: Female

DRUGS (2)
  1. DIANEAL [Suspect]
     Indication: PERITONEAL DIALYSIS
     Route: 033
     Dates: start: 20090101
  2. IV SOLUTION UNKNOWN [Suspect]
     Indication: DIARRHOEA
     Route: 042
     Dates: start: 20110301, end: 20110301

REACTIONS (8)
  - INFLUENZA [None]
  - DECREASED APPETITE [None]
  - PULMONARY OEDEMA [None]
  - DIARRHOEA [None]
  - VIRAL INFECTION [None]
  - CHEST PAIN [None]
  - CARDIAC DISORDER [None]
  - FATIGUE [None]
